FAERS Safety Report 24760966 (Version 1)
Quarter: 2024Q4

REPORT INFORMATION
  Report Type: Spontaneous
  Country: US (occurrence: US)
  Receive Date: 20241220
  Receipt Date: 20241220
  Transmission Date: 20250115
  Serious: No
  Sender: MERCK
  Company Number: US-009507513-2412USA005565

PATIENT
  Age: 54 Year
  Sex: Male

DRUGS (3)
  1. KEYTRUDA [Suspect]
     Active Substance: PEMBROLIZUMAB
     Indication: Malignant melanoma
     Dosage: UNKNOWN DOSE, Q3W
     Route: 042
     Dates: start: 20241126
  2. ZYRTEC [Concomitant]
     Active Substance: CETIRIZINE HYDROCHLORIDE
     Dosage: UNK
  3. CHOLECALCIFEROL [Concomitant]
     Active Substance: CHOLECALCIFEROL
     Dosage: UNK

REACTIONS (1)
  - Ventricular extrasystoles [Not Recovered/Not Resolved]

NARRATIVE: CASE EVENT DATE: 20241208
